FAERS Safety Report 16909799 (Version 3)
Quarter: 2019Q4

REPORT INFORMATION
  Report Type: Spontaneous
  Country: US (occurrence: US)
  Receive Date: 20191011
  Receipt Date: 20191114
  Transmission Date: 20200122
  Serious: No
  Sender: FDA-Public Use
  Company Number: US-GLAXOSMITHKLINE-US2019179965

PATIENT
  Sex: Male

DRUGS (1)
  1. TRELEGY ELLIPTA [Suspect]
     Active Substance: FLUTICASONE FUROATE\UMECLIDINIUM BROMIDE\VILANTEROL TRIFENATATE
     Indication: PRODUCT USED FOR UNKNOWN INDICATION
     Dosage: UNK (100/62.5/25MCG)
     Route: 065
     Dates: start: 2016

REACTIONS (6)
  - Drug ineffective [Unknown]
  - Product complaint [Unknown]
  - Therapeutic response unexpected [Unknown]
  - Gait inability [Recovering/Resolving]
  - Weight decreased [Unknown]
  - Malaise [Recovering/Resolving]
